FAERS Safety Report 24089171 (Version 1)
Quarter: 2024Q3

REPORT INFORMATION
  Report Type: Spontaneous
  Country: US (occurrence: US)
  Receive Date: 20240715
  Receipt Date: 20240715
  Transmission Date: 20241016
  Serious: No
  Sender: PERRIGO
  Company Number: US-PERRIGO-23US007126

PATIENT
  Age: 71 Year
  Sex: Female
  Weight: 52.154 kg

DRUGS (3)
  1. MINOXIDIL [Suspect]
     Active Substance: MINOXIDIL
     Indication: Alopecia
     Dosage: 1 ML, QD
     Route: 061
     Dates: start: 20230330, end: 20230618
  2. SYNTHROID [Concomitant]
     Active Substance: LEVOTHYROXINE SODIUM
     Indication: Thyroid disorder
     Dosage: UNKNOWN, UNKNOWN
     Route: 065
     Dates: start: 1983
  3. BUDESONIDE [Concomitant]
     Active Substance: BUDESONIDE
     Indication: Colitis microscopic
     Dosage: UNKNOWN, UNKNOWN
     Route: 065
     Dates: start: 2017

REACTIONS (2)
  - Application site pruritus [Not Recovered/Not Resolved]
  - Off label use [Recovered/Resolved]

NARRATIVE: CASE EVENT DATE: 20230330
